FAERS Safety Report 8461726-6 (Version None)
Quarter: 2012Q2

REPORT INFORMATION
  Report Type: 
  Country: None (occurrence: None)
  Receive Date: 20120625
  Receipt Date: 20120611
  Transmission Date: 20120825
  Serious: Yes (Death, Hospitalization)
  Sender: FDA-Public Use
  Company Number: CA-SANOFI-AVENTIS-2012SA042242

PATIENT
  Age: 70 Year
  Sex: Male
  Weight: 51.6 kg

DRUGS (9)
  1. TAXOTERE [Suspect]
     Indication: NON-SMALL CELL LUNG CANCER STAGE IV
     Route: 041
     Dates: start: 20120511, end: 20120511
  2. VITAMIN D [Concomitant]
     Dates: start: 20110929
  3. SENOKOT /UNK/ [Concomitant]
     Dates: start: 20120501
  4. BLINDED THERAPY [Suspect]
     Indication: NON-SMALL CELL LUNG CANCER STAGE IV
     Dates: start: 20120511, end: 20120511
  5. BISOPROLOL [Concomitant]
     Dates: start: 20110707
  6. HYDROMORPHONE HCL [Concomitant]
     Dates: start: 20110707
  7. HYDROMORPHONE HCL [Concomitant]
     Dates: start: 20110729
  8. METHADONE HCL [Concomitant]
     Dates: start: 20120515
  9. POLYETHYLENE GLYCOL [Concomitant]
     Dates: start: 20120501

REACTIONS (2)
  - DEATH [None]
  - GENERAL PHYSICAL HEALTH DETERIORATION [None]
